FAERS Safety Report 5358337-8 (Version None)
Quarter: 2007Q2

REPORT INFORMATION
  Report Type: 
  Country: None (occurrence: None)
  Receive Date: 20070530
  Receipt Date: 20061004
  Transmission Date: 20071010
  Serious: Yes (Other)
  Sender: FDA-Public Use
  Company Number: US200601005086

PATIENT
  Age: 54 Year
  Sex: Female
  Weight: 90.7 kg

DRUGS (14)
  1. ZYPREXA [Suspect]
     Indication: BIPOLAR DISORDER
     Dosage: SEE IMAGE
     Dates: start: 20000101
  2. ZYPREXA [Suspect]
     Indication: BIPOLAR DISORDER
     Dosage: SEE IMAGE
     Dates: start: 20040601
  3. WELLBATRIN (BUPROPION HYDROCHLORIDE) [Concomitant]
  4. BUSPAR /AUS/(BUSPIRONE HYDROCHLORIDE) [Concomitant]
  5. TRAZODONE HCL [Concomitant]
  6. MIRTAZAPINE [Concomitant]
  7. PREMARIN [Concomitant]
  8. PROVERA [Concomitant]
  9. PROTONIX [Concomitant]
  10. ZANTAC [Concomitant]
  11. LOMOTIL [Concomitant]
  12. SERZONE [Concomitant]
  13. KLONOPIN [Concomitant]
  14. NEURONTIN [Concomitant]

REACTIONS (13)
  - BACK PAIN [None]
  - CHEST PAIN [None]
  - CONVULSION [None]
  - DIABETES MELLITUS NON-INSULIN-DEPENDENT [None]
  - DIARRHOEA [None]
  - DIZZINESS [None]
  - HYPERSOMNIA [None]
  - OEDEMA PERIPHERAL [None]
  - PAIN [None]
  - POLLAKIURIA [None]
  - THIRST [None]
  - VOMITING [None]
  - WEIGHT INCREASED [None]
